FAERS Safety Report 9110280 (Version 1)
Quarter: 2013Q1

REPORT INFORMATION
  Report Type: Spontaneous
  Country: US (occurrence: US)
  Receive Date: 20130222
  Receipt Date: 20130222
  Transmission Date: 20140127
  Serious: Yes (Hospitalization)
  Sender: FDA-Public Use
  Company Number: US-PFIZER INC-2013063548

PATIENT
  Age: 81 Year
  Sex: Male

DRUGS (8)
  1. SIMVASTATIN [Suspect]
     Dosage: 80 MG, DAILY
  2. GEMFIBROZIL [Interacting]
     Dosage: 600 MG, 2X/DAY
     Route: 048
  3. ASPIRIN [Concomitant]
     Dosage: UNK
  4. CLOPIDOGREL [Concomitant]
     Dosage: UNK
  5. ISOSORBIDE DINITRATE [Concomitant]
     Dosage: UNK
  6. FUROSEMIDE [Concomitant]
     Dosage: UNK
  7. METOPROLOL TARTRATE [Concomitant]
     Dosage: 100 MG, 2X/DAY
     Route: 048
  8. OMEPRAZOLE [Concomitant]
     Dosage: UNK

REACTIONS (3)
  - Drug interaction [Unknown]
  - Rhabdomyolysis [Unknown]
  - Renal failure acute [Unknown]
